FAERS Safety Report 6663729-0 (Version None)
Quarter: 2010Q2

REPORT INFORMATION
  Report Type: 
  Country: None (occurrence: None)
  Receive Date: 20100401
  Receipt Date: 20100323
  Transmission Date: 20101027
  Serious: Yes (Other)
  Sender: FDA-Public Use
  Company Number: JP-PFIZER INC-2010038876

PATIENT
  Sex: Male

DRUGS (4)
  1. SOLANAX [Suspect]
     Dosage: 2 TABLETS
     Route: 048
  2. ZOLOFT [Suspect]
     Dosage: 2 TABLETS
     Route: 048
     Dates: start: 20100301
  3. PAXIL [Concomitant]
     Route: 048
  4. LUVOX [Concomitant]
     Route: 048

REACTIONS (3)
  - ALCOHOL WITHDRAWAL SYNDROME [None]
  - DYSARTHRIA [None]
  - TREMOR [None]
